FAERS Safety Report 12373545 (Version 9)
Quarter: 2017Q1

REPORT INFORMATION
  Report Type: Report from Study
  Country: BR (occurrence: BR)
  Receive Date: 20160516
  Receipt Date: 20170202
  Transmission Date: 20170428
  Serious: Yes (Death, Life-Threatening, Hospitalization, Other)
  Sender: FDA-Public Use
  Company Number: PHHY2016BR067594

PATIENT
  Sex: Male
  Weight: 60 kg

DRUGS (1)
  1. SANDOSTATIN LAR DEPOT [Suspect]
     Active Substance: OCTREOTIDE ACETATE
     Indication: NEUROENDOCRINE TUMOUR
     Dosage: 30 MG, QMO (EVERY 28 DAYS)
     Route: 030
     Dates: start: 2014

REACTIONS (20)
  - Pain [Unknown]
  - Malaise [Unknown]
  - Weight decreased [Unknown]
  - Asthenia [Unknown]
  - Diarrhoea [Unknown]
  - Back pain [Unknown]
  - Dysuria [Unknown]
  - Feeling abnormal [Unknown]
  - Gastrointestinal disorder [Unknown]
  - Dysentery [Unknown]
  - Abdominal pain [Unknown]
  - Hepatic pain [Unknown]
  - Liver disorder [Unknown]
  - Eating disorder [Unknown]
  - Gait disturbance [Unknown]
  - Malignant neoplasm progression [Fatal]
  - Abdominal pain upper [Unknown]
  - Frequent bowel movements [Unknown]
  - Faeces discoloured [Unknown]
  - Drug ineffective [Unknown]
